FAERS Safety Report 5255344-0 (Version None)
Quarter: 2007Q1

REPORT INFORMATION
  Report Type: 
  Country: None (occurrence: None)
  Receive Date: 20070228
  Receipt Date: 20070221
  Transmission Date: 20070707
  Serious: Yes (Other)
  Sender: FDA-Public Use
  Company Number: 2007SP003133

PATIENT
  Age: 55 Year
  Sex: Male

DRUGS (1)
  1. CLARITIN REDITABS [Suspect]
     Indication: RHINITIS ALLERGIC
     Dosage: 10 MG; QD; PO
     Route: 048
     Dates: start: 20070216, end: 20070216

REACTIONS (1)
  - ARRHYTHMIA [None]
